FAERS Safety Report 5592705-4 (Version None)
Quarter: 2008Q1

REPORT INFORMATION
  Report Type: 
  Country: None (occurrence: None)
  Receive Date: 20080116
  Receipt Date: 20080108
  Transmission Date: 20080703
  Serious: Yes (Death, Hospitalization)
  Sender: FDA-Public Use
  Company Number: US-SP-2008-00011

PATIENT
  Age: 78 Year
  Sex: Male

DRUGS (1)
  1. BCG  THERAPEUTICS [Suspect]
     Indication: BLADDER CANCER
     Route: 043

REACTIONS (6)
  - AORTO-OESOPHAGEAL FISTULA [None]
  - BOVINE TUBERCULOSIS [None]
  - HAEMATURIA [None]
  - HAEMORRHAGE [None]
  - MEDIASTINAL MASS [None]
  - URINARY RETENTION [None]
